FAERS Safety Report 14299562 (Version 2)
Quarter: 2018Q3

REPORT INFORMATION
  Report Type: Report from Study
  Country: None (occurrence: US)
  Receive Date: 20171219
  Receipt Date: 20180704
  Transmission Date: 20181010
  Serious: Yes (Hospitalization)
  Sender: FDA-Public Use
  Company Number: US-ABBVIE-17K-163-2193746-00

PATIENT
  Age: 70 Year
  Sex: Female

DRUGS (1)
  1. HUMIRA [Suspect]
     Active Substance: ADALIMUMAB
     Indication: ANKYLOSING SPONDYLITIS
     Route: 058

REACTIONS (20)
  - Cerebral thrombosis [Recovering/Resolving]
  - Traumatic intracranial haemorrhage [Recovering/Resolving]
  - Skin swelling [Unknown]
  - Amnesia [Recovered/Resolved]
  - Sinusitis [Recovering/Resolving]
  - Brain injury [Recovering/Resolving]
  - Bone density increased [Not Recovered/Not Resolved]
  - Feeling hot [Unknown]
  - Fall [Recovered/Resolved]
  - Bronchitis [Recovering/Resolving]
  - Condition aggravated [Unknown]
  - Fall [Recovering/Resolving]
  - Hot flush [Unknown]
  - Vomiting [Unknown]
  - Haematoma [Unknown]
  - Middle ear effusion [Unknown]
  - Headache [Unknown]
  - Neck pain [Not Recovered/Not Resolved]
  - Haemorrhage [Unknown]
  - Hyperhidrosis [Unknown]

NARRATIVE: CASE EVENT DATE: 2017
